FAERS Safety Report 8760457 (Version 1)
Quarter: 2012Q4

REPORT INFORMATION
  Report Type: 
  Country: CL (occurrence: CL)
  Receive Date: 20120830
  Receipt Date: 20120830
  Transmission Date: 20130627
  Serious: Yes (Other)
  Sender: FDA-Public Use
  Company Number: PHHY2012CL074734

PATIENT
  Age: 41 Year
  Sex: Male

DRUGS (3)
  1. LEPONEX [Suspect]
     Indication: SCHIZOPHRENIA
     Dosage: 75 mg,daily
     Dates: start: 20110629
  2. EFEXOR XR [Concomitant]
  3. EUTIROX [Concomitant]

REACTIONS (1)
  - Rotavirus infection [Unknown]
